FAERS Safety Report 5471437-7 (Version None)
Quarter: 2007Q3

REPORT INFORMATION
  Report Type: 
  Country: None (occurrence: None)
  Receive Date: 20070928
  Receipt Date: 20061114
  Transmission Date: 20080115
  Serious: No
  Sender: FDA-Public Use
  Company Number: US-BRISTOL-MYERS SQUIBB COMPANY-13544945

PATIENT
  Age: 82 Year
  Sex: Female

DRUGS (4)
  1. DEFINITY [Suspect]
     Indication: ECHOCARDIOGRAM
     Dosage: 1.5 ML DEFINITY MIXED WITH 8 CC SALINE.
     Route: 042
     Dates: start: 20061012, end: 20061012
  2. SODIUM CHLORIDE 0.9% [Concomitant]
     Indication: ECHOCARDIOGRAM
     Route: 042
     Dates: start: 20061012, end: 20061012
  3. COUMADIN [Concomitant]
  4. LISINOPRIL [Concomitant]

REACTIONS (2)
  - BACK PAIN [None]
  - DIZZINESS [None]
